FAERS Safety Report 24063652 (Version 1)
Quarter: 2024Q3

REPORT INFORMATION
  Report Type: Report from Study
  Country: US (occurrence: US)
  Receive Date: 20240709
  Receipt Date: 20240709
  Transmission Date: 20241016
  Serious: Yes (Other)
  Sender: AMNEAL
  Company Number: US-AMNEAL PHARMACEUTICALS-2024-AMRX-02462

PATIENT
  Sex: Female
  Weight: 70.8 kg

DRUGS (23)
  1. CARBIDOPA\LEVODOPA [Suspect]
     Active Substance: CARBIDOPA\LEVODOPA
     Indication: Parkinson^s disease
     Dosage: (23.75-95 MG) 3 CAPSULES, 3 /DAY
     Route: 048
  2. CARBIDOPA\LEVODOPA [Suspect]
     Active Substance: CARBIDOPA\LEVODOPA
     Dosage: (61.25-245 MG) 1 CAPSULES, 4 /DAY
     Route: 048
     Dates: start: 20230508
  3. CARBIDOPA\LEVODOPA [Suspect]
     Active Substance: CARBIDOPA\LEVODOPA
     Dosage: (23.75-95 MG) 3 CAPSULES, 5 /DAY (4 HOURS BETWEEN DOSES)
     Route: 048
  4. CARBIDOPA\LEVODOPA [Suspect]
     Active Substance: CARBIDOPA\LEVODOPA
     Dosage: (61.25-245 MG) 5 TO 6 TIMES DAILY
     Route: 048
  5. CARBIDOPA\LEVODOPA [Suspect]
     Active Substance: CARBIDOPA\LEVODOPA
     Dosage: (23.75-95 MG) 3 CAPSULES, 6 /DAY (4 HOURS BETWEEN DOSES)
     Route: 048
  6. CARBIDOPA\LEVODOPA [Suspect]
     Active Substance: CARBIDOPA\LEVODOPA
     Dosage: (23.75-95 MG) 4 CAPSULES AT 6AM, 3 CAPSULES EVERY 3 HOURS WHILE AWAKE
     Route: 048
  7. PROZAC [Concomitant]
     Active Substance: FLUOXETINE HYDROCHLORIDE
     Indication: Product used for unknown indication
     Dosage: 60
     Route: 065
  8. PROZAC [Concomitant]
     Active Substance: FLUOXETINE HYDROCHLORIDE
     Dosage: TAKE 2 CAPSULES (80  MG TOTAL) BY MOUTH IN  THE MORNING.
     Route: 048
  9. MIDODRINE [Concomitant]
     Active Substance: MIDODRINE
     Indication: Product used for unknown indication
     Dosage: (10 MG) 1 TABLET TWICE PER DAY AT 0600 AND 0900 EVERYDAY
     Route: 048
     Dates: start: 20230914
  10. MIDODRINE [Concomitant]
     Active Substance: MIDODRINE
     Dosage: 1 TABLET AT 1200 EVERYDAY (PATIENT TAKING DIFFERENTLY: TAKE 1 TABLET (5 MG TOTAL) BY  MOUTH. 1 TABLE
     Route: 048
     Dates: start: 20230914
  11. FLORINEF ACETATE [Concomitant]
     Active Substance: FLUDROCORTISONE ACETATE
     Indication: Product used for unknown indication
     Dosage: 0.2 MILLIGRAM (5AM, OUT OF BED AT 6AM, THEN EVERY 3 HOURS THEREAFTER, USUALLY TAKE 5-6 DOSES THROUGH
     Route: 065
     Dates: start: 20230818
  12. FLORINEF ACETATE [Concomitant]
     Active Substance: FLUDROCORTISONE ACETATE
     Dosage: TAKE 1 TABLET (0.1 MG TOTAL) BY MOUTH IN THE MORNING.
     Route: 065
  13. SINEMET [Concomitant]
     Active Substance: CARBIDOPA\LEVODOPA
     Indication: Parkinsonism
     Dosage: (25-100 MG) TAKE 1 FULL TABLET AT 0600, 0900, 1200, 1500, 1800 AND 2 TABS AT 9PM
     Route: 048
     Dates: start: 20231011
  14. SINEMET [Concomitant]
     Active Substance: CARBIDOPA\LEVODOPA
     Dosage: (25-100 MG) 1/2 TABLET AT 0600, 0900, 1200, 1500,AND 1800 AND HALF LAB PRN OFF TIME- MAXIMUM TOTAL 5
     Route: 048
     Dates: start: 20231011
  15. CRANBERRY [Concomitant]
     Active Substance: CRANBERRY
     Indication: Product used for unknown indication
     Dosage: 500 MILLIGRAM
     Route: 048
  16. DEMANNOSE [Concomitant]
     Active Substance: DEMANNOSE
     Indication: Product used for unknown indication
     Dosage: 1 CAPSULES, MORNING (1^AKE 1 CAPSULE BY  MOUTH IN THE MORNING)
     Route: 048
  17. MYRBETRIQ [Concomitant]
     Active Substance: MIRABEGRON
     Indication: Product used for unknown indication
     Dosage: TAKE 1 TABLET (25 MG  TOTAL) BY MOUTH IN THE  MORNING.
     Route: 048
  18. ZYPREXA [Concomitant]
     Active Substance: OLANZAPINE
     Indication: Product used for unknown indication
     Dosage: (2.5 MG) TAKE 1 TAB BY MOUTH TWICE PER DAY AS DIRECTED
     Route: 048
     Dates: start: 20230914
  19. DITROPAN [Concomitant]
     Active Substance: OXYBUTYNIN CHLORIDE
     Indication: Product used for unknown indication
     Dosage: TAKE 1 TABLET {5 MG  TOTAL) BY MOUTH IN THE MORNING.
     Route: 048
  20. PYRIDIUM [Concomitant]
     Active Substance: PHENAZOPYRIDINE
     Indication: Bladder spasm
     Dosage: TAKE 1 TABLET (100 MG  TOTAL) BY MOUTH AS  NEEDED
     Route: 048
     Dates: start: 20230712
  21. LEXAPRO [Concomitant]
     Active Substance: ESCITALOPRAM OXALATE
     Indication: Product used for unknown indication
     Dosage: TAKE 1 TABLET (5 MG  TOTAL) BY MOUTH IN THE  MORNING.
     Route: 048
     Dates: start: 20230804
  22. REQUIP XL [Concomitant]
     Active Substance: ROPINIROLE HYDROCHLORIDE
     Indication: Product used for unknown indication
     Dosage: (4 MG) TAKE 1 TABLET TWICE PER DAY AT 0600 AND 1800
     Route: 048
     Dates: start: 20230914
  23. ZANAFLEX [Concomitant]
     Active Substance: TIZANIDINE HYDROCHLORIDE
     Indication: Muscle spasms
     Dosage: TAKE 1 TABLET (4 MG TOTAL) BY MOUTH EVERY 6 (SIX) HOURS AS NEEDED
     Route: 048
     Dates: start: 20230818

REACTIONS (22)
  - Dystonia [Unknown]
  - Urinary tract infection [Unknown]
  - Panic attack [Unknown]
  - Freezing phenomenon [Unknown]
  - Tremor [Unknown]
  - Fall [Unknown]
  - Dysphoria [Unknown]
  - Phobia [Unknown]
  - Stress [Unknown]
  - Crying [Unknown]
  - Depression [Unknown]
  - Hypertonic bladder [Unknown]
  - Dysphonia [Unknown]
  - Gait disturbance [Unknown]
  - Muscle rigidity [Unknown]
  - On and off phenomenon [Unknown]
  - Initial insomnia [Unknown]
  - Paranoia [Unknown]
  - Constipation [Unknown]
  - Dyskinesia [Unknown]
  - Anxiety [Unknown]
  - Dizziness [Unknown]
